FAERS Safety Report 18035950 (Version 1)
Quarter: 2020Q3

REPORT INFORMATION
  Report Type: Spontaneous
  Country: US (occurrence: US)
  Receive Date: 20200716
  Receipt Date: 20200716
  Transmission Date: 20201103
  Serious: No
  Sender: FDA-Public Use
  Company Number: None

PATIENT
  Age: 55 Year
  Sex: Male

DRUGS (2)
  1. PREGABALIN (PREGABALIN 25MG CAP,ORAL) [Suspect]
     Active Substance: PREGABALIN
     Indication: PAIN
     Dates: start: 20181109, end: 20181127
  2. PREGABALIN (PREGABALIN 25MG CAP,ORAL) [Suspect]
     Active Substance: PREGABALIN
     Indication: NEURALGIA

REACTIONS (2)
  - Tachycardia [None]
  - Hypertension [None]

NARRATIVE: CASE EVENT DATE: 20181127
